FAERS Safety Report 11271707 (Version 1)
Quarter: 2015Q3

REPORT INFORMATION
  Report Type: Spontaneous
  Country: FR (occurrence: FR)
  Receive Date: 20150715
  Receipt Date: 20150715
  Transmission Date: 20151125
  Serious: Yes (Hospitalization)
  Sender: FDA-Public Use
  Company Number: FR-ROCHE-1606800

PATIENT
  Age: 22 Year
  Sex: Female

DRUGS (3)
  1. CEBUTID [Suspect]
     Active Substance: FLURBIPROFEN
     Indication: ARTHRITIS
     Route: 048
     Dates: start: 201506, end: 201506
  2. METHOTREXATE [Suspect]
     Active Substance: METHOTREXATE
     Indication: SPONDYLITIS
     Route: 048
     Dates: start: 201404, end: 20150612
  3. APRANAX [Suspect]
     Active Substance: NAPROXEN
     Indication: ARTHRITIS
     Route: 048
     Dates: start: 201506, end: 201506

REACTIONS (1)
  - Hepatocellular injury [Unknown]

NARRATIVE: CASE EVENT DATE: 20150622
